FAERS Safety Report 5481541-5 (Version None)
Quarter: 2007Q4

REPORT INFORMATION
  Report Type: 
  Country: None (occurrence: None)
  Receive Date: 20071005
  Receipt Date: 20071005
  Transmission Date: 20080405
  Serious: No
  Sender: FDA-Public Use
  Company Number: None

PATIENT

DRUGS (1)
  1. ZELNORM [Suspect]
     Dosage: 6 MG  PER TABLE

REACTIONS (3)
  - FIBROMYALGIA [None]
  - NERVE INJURY [None]
  - PAIN [None]
